FAERS Safety Report 9173195 (Version 1)
Quarter: 2013Q1

REPORT INFORMATION
  Report Type: Spontaneous
  Country: US (occurrence: None)
  Receive Date: 20130319
  Receipt Date: 20130319
  Transmission Date: 20140127
  Serious: Yes (Other)
  Sender: FDA-Public Use
  Company Number: None

PATIENT
  Age: 61 Year
  Sex: Female
  Weight: 60.9 kg

DRUGS (1)
  1. GAMUNEX-C [Suspect]
     Dosage: 7 GRAMS Q 10 DAYS SC
     Route: 058

REACTIONS (2)
  - Dyslipidaemia [None]
  - Arteriosclerosis [None]
